FAERS Safety Report 9948923 (Version 2)
Quarter: 2014Q2

REPORT INFORMATION
  Report Type: Spontaneous
  Country: US (occurrence: US)
  Receive Date: 20140304
  Receipt Date: 20140501
  Transmission Date: 20141212
  Serious: Yes (Hospitalization)
  Sender: FDA-Public Use
  Company Number: US-BIOGENIDEC-2014BI017915

PATIENT
  Sex: Female

DRUGS (11)
  1. TECFIDERA [Suspect]
     Indication: MULTIPLE SCLEROSIS
     Route: 048
  2. BACLOFEN [Concomitant]
  3. CALCITONIN (SALMON) [Concomitant]
  4. CALCIUM + D [Concomitant]
  5. DEXILANT [Concomitant]
  6. ERGOCALCIFEROL [Concomitant]
  7. FLUTICASONE PROPIONATE [Concomitant]
  8. LEVOXYL [Concomitant]
  9. LYRICA [Concomitant]
  10. VENTOLIN HFA [Concomitant]
  11. VIIBRYD [Concomitant]

REACTIONS (1)
  - Multiple sclerosis relapse [Unknown]
